FAERS Safety Report 9064844 (Version 1)
Quarter: 2013Q1

REPORT INFORMATION
  Report Type: Spontaneous
  Country: IT (occurrence: IT)
  Receive Date: 20130213
  Receipt Date: 20130213
  Transmission Date: 20140127
  Serious: Yes (Other)
  Sender: FDA-Public Use
  Company Number: IT-ROCHE-1189305

PATIENT
  Age: 22 Year
  Sex: Female

DRUGS (2)
  1. RITUXIMAB [Suspect]
     Indication: HODGKIN^S DISEASE
     Dosage: ON DAY 1
     Route: 065
  2. BENDAMUSTINE [Suspect]
     Indication: HODGKIN^S DISEASE
     Dosage: ON DAY 1 AND 2
     Route: 065

REACTIONS (1)
  - Hepatotoxicity [Unknown]
